FAERS Safety Report 18080163 (Version 1)
Quarter: 2020Q3

REPORT INFORMATION
  Report Type: Spontaneous
  Country: US (occurrence: US)
  Receive Date: 20200728
  Receipt Date: 20200728
  Transmission Date: 20201103
  Serious: Yes (Other)
  Sender: FDA-Public Use
  Company Number: None

PATIENT
  Age: 76 Year
  Sex: Male
  Weight: 59.85 kg

DRUGS (9)
  1. VITAMIN B2 [Concomitant]
     Active Substance: RIBOFLAVIN
  2. ACYCLOVIR. [Concomitant]
     Active Substance: ACYCLOVIR
  3. NINLARO [Suspect]
     Active Substance: IXAZOMIB CITRATE
     Indication: PLASMA CELL MYELOMA
     Dosage: ?          OTHER FREQUENCY:WEEKLY;?
     Route: 048
     Dates: start: 20190702
  4. ASPIRIN. [Concomitant]
     Active Substance: ASPIRIN
  5. FOLIC ACID. [Concomitant]
     Active Substance: FOLIC ACID
  6. OMEPRAZOLE. [Concomitant]
     Active Substance: OMEPRAZOLE
  7. ZOLEDRONIC ACID [Concomitant]
     Active Substance: ZOLEDRONIC ACID
  8. DAPSONE. [Concomitant]
     Active Substance: DAPSONE
  9. POMALYST [Concomitant]
     Active Substance: POMALIDOMIDE

REACTIONS (4)
  - White blood cell count decreased [None]
  - Lethargy [None]
  - Fatigue [None]
  - Platelet count decreased [None]

NARRATIVE: CASE EVENT DATE: 20200728
